FAERS Safety Report 12929931 (Version 1)
Quarter: 2016Q4

REPORT INFORMATION
  Report Type: Spontaneous
  Country: US (occurrence: US)
  Receive Date: 20161110
  Receipt Date: 20161110
  Transmission Date: 20170207
  Serious: Yes (Disabling, Other)
  Sender: FDA-Public Use
  Company Number: None

PATIENT
  Age: 66 Year
  Sex: Female
  Weight: 81.9 kg

DRUGS (9)
  1. TYLENOL WITH CODEINE [Concomitant]
     Active Substance: ACETAMINOPHEN\CODEINE PHOSPHATE
  2. LIALDA [Concomitant]
     Active Substance: MESALAMINE
  3. SYNTHROID [Concomitant]
     Active Substance: LEVOTHYROXINE SODIUM
  4. RETUXIN WITH DRIP STEROID [Concomitant]
  5. FOLIC ACID. [Concomitant]
     Active Substance: FOLIC ACID
  6. METFORMIN [Concomitant]
     Active Substance: METFORMIN HYDROCHLORIDE
  7. LOVAZA [Concomitant]
     Active Substance: OMEGA-3-ACID ETHYL ESTERS
  8. METHOTREXATE. [Concomitant]
     Active Substance: METHOTREXATE
  9. RAYOS [Suspect]
     Active Substance: PREDNISONE
     Indication: INFLAMMATORY BOWEL DISEASE
     Route: 048
     Dates: start: 20160915, end: 20161110

REACTIONS (7)
  - Withdrawal syndrome [None]
  - Chills [None]
  - Abdominal pain [None]
  - Diarrhoea [None]
  - Vomiting [None]
  - Tremor [None]
  - Nausea [None]

NARRATIVE: CASE EVENT DATE: 20161010
